FAERS Safety Report 11175752 (Version 4)
Quarter: 2015Q3

REPORT INFORMATION
  Report Type: Spontaneous
  Country: US (occurrence: US)
  Receive Date: 20150609
  Receipt Date: 20150929
  Transmission Date: 20151125
  Serious: No
  Sender: FDA-Public Use
  Company Number: US-GLAXOSMITHKLINE-US2015GSK067542

PATIENT
  Sex: Male

DRUGS (1)
  1. PROMACTA [Suspect]
     Active Substance: ELTROMBOPAG OLAMINE
     Indication: THROMBOCYTOPENIA
     Dosage: 75 MG, QD
     Route: 048
     Dates: start: 20150205

REACTIONS (6)
  - Constipation [Unknown]
  - Gait disturbance [Unknown]
  - Amnesia [Unknown]
  - Hypoaesthesia [Unknown]
  - Memory impairment [Unknown]
  - Fatigue [Unknown]
